FAERS Safety Report 6934016-8 (Version None)
Quarter: 2010Q3

REPORT INFORMATION
  Report Type: 
  Country: None (occurrence: None)
  Receive Date: 20100820
  Receipt Date: 20100812
  Transmission Date: 20110219
  Serious: Yes (Other)
  Sender: FDA-Public Use
  Company Number: AU-PFIZER INC-2010081939

PATIENT
  Age: 83 Year
  Sex: Male

DRUGS (7)
  1. LIPITOR [Suspect]
     Indication: MYOCARDIAL ISCHAEMIA
     Dosage: 40 MG, 1X/DAY
     Route: 048
     Dates: start: 20030101
  2. ASPIRIN [Concomitant]
     Dosage: 100 MG, 1X/DAY IN THE MORNING
  3. AVAPRO [Concomitant]
     Dosage: 150 MG, 1X/DAY IN THE MORNING
  4. INDOCIN [Concomitant]
     Dosage: 25 MG, 1 TO 2, THREE TIMES DAILY AS NEEDED
  5. OSTELIN [Concomitant]
     Dosage: 1000 IU, 1X/DAY
  6. XALATAN [Concomitant]
     Dosage: 2.5 ML, UNK
     Route: 047
  7. ZOLOFT [Concomitant]
     Dosage: 50 MG, 1X/DAY IN THE MORNING

REACTIONS (4)
  - MUSCULAR WEAKNESS [None]
  - MYALGIA [None]
  - OSTEOARTHRITIS [None]
  - PAIN IN EXTREMITY [None]
